FAERS Safety Report 25077752 (Version 3)
Quarter: 2025Q3

REPORT INFORMATION
  Report Type: Spontaneous
  Country: JP (occurrence: JP)
  Receive Date: 20250314
  Receipt Date: 20250902
  Transmission Date: 20251020
  Serious: Yes (Other)
  Sender: ELI LILLY AND COMPANY
  Company Number: JP-ELI_LILLY_AND_COMPANY-JP202503010052

PATIENT
  Age: 43 Year
  Sex: Male
  Weight: 49.3 kg

DRUGS (2)
  1. MOUNJARO [Suspect]
     Active Substance: TIRZEPATIDE
     Indication: Type 2 diabetes mellitus
     Route: 058
  2. MOUNJARO [Suspect]
     Active Substance: TIRZEPATIDE
     Route: 058

REACTIONS (2)
  - Diabetic retinopathy [Recovered/Resolved with Sequelae]
  - Visual acuity reduced [Unknown]

NARRATIVE: CASE EVENT DATE: 20241023
